FAERS Safety Report 4616550-9 (Version None)
Quarter: 2005Q1

REPORT INFORMATION
  Report Type: 
  Country: None (occurrence: None)
  Receive Date: 20050318
  Receipt Date: 20050310
  Transmission Date: 20050727
  Serious: No
  Sender: FDA-Public Use
  Company Number: 2005UW02010

PATIENT
  Age: 72 Year
  Sex: Male
  Weight: 92.9874 kg

DRUGS (8)
  1. NEXIUM [Suspect]
     Indication: BARRETT'S OESOPHAGUS
     Dosage: 20 MG PO
     Route: 048
  2. NEXIUM [Suspect]
     Indication: BARRETT'S OESOPHAGUS
     Dosage: 40 MG DAILY PO
     Route: 048
     Dates: start: 20040326, end: 20050104
  3. NIASPAN [Concomitant]
  4. ALLOPURINOL [Concomitant]
  5. COREG [Concomitant]
  6. ADAVIR [Concomitant]
  7. NO MATCH [Concomitant]
  8. CRESTOR [Concomitant]

REACTIONS (8)
  - AGEUSIA [None]
  - ARTHRITIS [None]
  - DIPLOPIA [None]
  - LACRIMATION INCREASED [None]
  - NEPHROLITHIASIS [None]
  - RHINORRHOEA [None]
  - SINUSITIS [None]
  - SPONDYLITIS [None]
